FAERS Safety Report 9861670 (Version 1)
Quarter: 2014Q1

REPORT INFORMATION
  Report Type: Spontaneous
  Country: US (occurrence: None)
  Receive Date: 20140131
  Receipt Date: 20140131
  Transmission Date: 20141002
  Serious: Yes (Disabling)
  Sender: FDA-Public Use
  Company Number: None

PATIENT
  Age: 58 Year
  Sex: Female
  Weight: 48.99 kg

DRUGS (5)
  1. GOLYTELY [Suspect]
     Indication: COLONOSCOPY
     Dosage: MEDICINE WAS TO BE TAKEN CONTINUOUSLY UNTIL CONSUMER
     Route: 048
     Dates: start: 20140116, end: 20140116
  2. ACYCLOVIR [Concomitant]
  3. VIT. D, FOLIC ACID, VIT. B - COMPLEX [Concomitant]
  4. CALCIUM CITRATE [Concomitant]
  5. VIT. K2 [Concomitant]

REACTIONS (2)
  - Pain in extremity [None]
  - Insomnia [None]
